FAERS Safety Report 25153820 (Version 1)
Quarter: 2025Q2

REPORT INFORMATION
  Report Type: Spontaneous
  Country: CN (occurrence: CN)
  Receive Date: 20250403
  Receipt Date: 20250403
  Transmission Date: 20250717
  Serious: Yes (Other)
  Sender: UNICHEM
  Company Number: CN-UNICHEM LABORATORIES LIMITED-UNI-2025-CN-001690

PATIENT

DRUGS (1)
  1. BACLOFEN [Suspect]
     Active Substance: BACLOFEN
     Indication: Muscle spasms
     Route: 048
     Dates: start: 20231108

REACTIONS (1)
  - Central sleep apnoea syndrome [Recovering/Resolving]
